FAERS Safety Report 24392546 (Version 2)
Quarter: 2024Q4

REPORT INFORMATION
  Report Type: Spontaneous
  Country: BR (occurrence: BR)
  Receive Date: 20241003
  Receipt Date: 20241011
  Transmission Date: 20250115
  Serious: Yes (Other)
  Sender: GLAXOSMITHKLINE
  Company Number: BR-GLAXOSMITHKLINE-BR2024AMR119886

PATIENT

DRUGS (1)
  1. TRELEGY ELLIPTA [Suspect]
     Active Substance: FLUTICASONE FUROATE\UMECLIDINIUM BROMIDE\VILANTEROL TRIFENATATE
     Indication: Bronchiolitis
     Dosage: UNK

REACTIONS (4)
  - Bronchiolitis [Unknown]
  - Nasopharyngitis [Unknown]
  - Product prescribing issue [Unknown]
  - Product use in unapproved indication [Unknown]
